FAERS Safety Report 6768450-6 (Version None)
Quarter: 2010Q2

REPORT INFORMATION
  Report Type: 
  Country: None (occurrence: None)
  Receive Date: 20100614
  Receipt Date: 20100531
  Transmission Date: 20101027
  Serious: Yes (Hospitalization, Other)
  Sender: FDA-Public Use
  Company Number: FR-BAYER-201027857GPV

PATIENT
  Age: 90 Year
  Sex: Female

DRUGS (4)
  1. CIFLOX [Suspect]
     Dosage: UNIT DOSE: 500 MG
     Route: 048
     Dates: start: 20091207, end: 20091209
  2. PAROXETINE [Concomitant]
     Dosage: LONG TERM TREATMENT
     Route: 048
     Dates: end: 20091221
  3. MOPRAL [Concomitant]
     Route: 048
  4. PARACETAMOL [Concomitant]
     Dosage: 3 TO 4 TABLETS PER DAY
     Route: 048

REACTIONS (4)
  - DIZZINESS [None]
  - FALL [None]
  - POST-TRAUMATIC PAIN [None]
  - VERTIGO [None]
